FAERS Safety Report 9461491 (Version 3)
Quarter: 2013Q4

REPORT INFORMATION
  Report Type: Spontaneous
  Country: GB (occurrence: GB)
  Receive Date: 20130816
  Receipt Date: 20131011
  Transmission Date: 20140711
  Serious: Yes (Hospitalization, Other)
  Sender: FDA-Public Use
  Company Number: PHFR2013GB004705

PATIENT
  Age: 34 Year
  Sex: Male
  Weight: 74 kg

DRUGS (5)
  1. CLOZARIL [Suspect]
     Indication: SCHIZOPHRENIA
     Dosage: 350 MG, QD
     Route: 048
     Dates: start: 2010
  2. CLOZARIL [Suspect]
     Dosage: UNK UKN, UNK
     Route: 048
     Dates: start: 20120103
  3. AMISULPRID [Concomitant]
     Indication: SCHIZOPHRENIA
     Dosage: 800 MG, QD
     Dates: start: 2010
  4. LEMOMIN [Concomitant]
     Indication: SCHIZOPHRENIA
     Dosage: 100 MG, QD
     Route: 048
     Dates: start: 2010
  5. FERROUS FUMERATE [Concomitant]
     Indication: ANAEMIA
     Dosage: 210 MG, QD
     Dates: start: 2010

REACTIONS (2)
  - Brugada syndrome [Not Recovered/Not Resolved]
  - Pulmonary embolism [Unknown]
